FAERS Safety Report 8961486 (Version 1)
Quarter: 2012Q4

REPORT INFORMATION
  Report Type: 
  Country: CA (occurrence: CA)
  Receive Date: 20121213
  Receipt Date: 20121213
  Transmission Date: 20130627
  Serious: Yes (Death, Other)
  Sender: FDA-Public Use
  Company Number: CA-JNJFOC-20121201305

PATIENT

DRUGS (17)
  1. LEVOFLOXACIN [Suspect]
     Indication: PRODUCT USED FOR UNKNOWN INDICATION
     Route: 065
  2. ANTIARRHYTHMIC AGENTS [Suspect]
     Indication: ARRHYTHMIA
     Route: 065
  3. ANTIDEPRESSANTS [Suspect]
     Indication: DEPRESSION
     Route: 065
  4. ANTI-EMETIC [Suspect]
     Indication: VOMITING
     Route: 065
  5. ANTIPROTOZOALS [Suspect]
     Indication: INFECTION PROTOZOAL
     Route: 065
  6. CENTRAL NERVOUS SYSTEM MEDICATION [Suspect]
     Indication: NERVOUS SYSTEM DISORDER
     Route: 065
  7. BETA BLOCKERS, NOS [Concomitant]
     Indication: HYPERTENSION
     Route: 065
  8. CALCIUM CHANNEL BLOCKERS [Concomitant]
     Indication: HYPERTENSION
     Route: 065
  9. ANGIOTENSIN-CONVERTING ENZYME INHIBITORS [Concomitant]
     Indication: HYPERTENSION
     Route: 065
  10. ANGIOTENSIN RECEPTOR BLOCKER NOS [Concomitant]
     Indication: HYPERTENSION
     Route: 065
  11. NSAIDS [Concomitant]
     Route: 065
  12. CORTICOSTEROIDS [Concomitant]
     Route: 055
  13. UNKNOWN MEDICATION [Concomitant]
     Route: 065
  14. CORTICOSTEROIDS [Concomitant]
     Route: 048
  15. RESPIRATORY MEDICATION [Concomitant]
     Route: 065
  16. LIPID LOWERING AGENT [Concomitant]
     Route: 065
  17. THYROID THERAPY [Concomitant]
     Route: 065

REACTIONS (6)
  - Sudden cardiac death [Fatal]
  - Arrhythmia [Unknown]
  - Ventricular fibrillation [Unknown]
  - Ventricular tachycardia [Unknown]
  - Cardiac arrest [Unknown]
  - Ventricular flutter [Unknown]
